FAERS Safety Report 6674605-1 (Version None)
Quarter: 2010Q2

REPORT INFORMATION
  Report Type: 
  Country: None (occurrence: None)
  Receive Date: 20100409
  Receipt Date: 20100331
  Transmission Date: 20101027
  Serious: Yes (Hospitalization)
  Sender: FDA-Public Use
  Company Number: FR-ROCHE-691519

PATIENT
  Sex: Male

DRUGS (2)
  1. BEVACIZUMAB [Suspect]
     Dosage: DOSE, FREQUENCY, FORM ROUTE FROM PROTOCOL
     Route: 042
  2. CAPECITABINE [Suspect]
     Route: 048

REACTIONS (1)
  - ILL-DEFINED DISORDER [None]
